FAERS Safety Report 21484461 (Version 1)
Quarter: 2022Q4

REPORT INFORMATION
  Report Type: Report from Study
  Country: US (occurrence: US)
  Receive Date: 20221020
  Receipt Date: 20221020
  Transmission Date: 20230113
  Serious: No
  Sender: FDA-Public Use
  Company Number: US-NOVARTISTESTPH-NVSC2022US235672

PATIENT
  Age: 23 Year
  Sex: Female

DRUGS (1)
  1. VIJOICE [Suspect]
     Active Substance: ALPELISIB
     Indication: Product used for unknown indication
     Dosage: 50 MG, QD
     Route: 048
     Dates: start: 20220908

REACTIONS (6)
  - Pain [Unknown]
  - Eczema [Unknown]
  - Condition aggravated [Unknown]
  - Swelling [Unknown]
  - Varicose vein [Unknown]
  - Angiopathy [Unknown]

NARRATIVE: CASE EVENT DATE: 20220908
